FAERS Safety Report 9228008 (Version 1)
Quarter: 2013Q1

REPORT INFORMATION
  Report Type: Spontaneous
  Country: US (occurrence: None)
  Receive Date: 20121023
  Receipt Date: 20121023
  Transmission Date: 20140127
  Serious: Yes (Other)
  Sender: FDA-Public Use
  Company Number: PHEH2012US011580

PATIENT
  Age: 55 Year
  Sex: Female
  Weight: 74.8 kg

DRUGS (1)
  1. VIVELLE DOT (ESTRADIOL) TRANS-THERAPEUTIC-SYSTEM [Suspect]
     Indication: MENOPAUSE

REACTIONS (5)
  - Depressed mood [None]
  - Malaise [None]
  - Somnolence [None]
  - Hyperhidrosis [None]
  - Wrong technique in drug usage process [None]
